FAERS Safety Report 9359715 (Version 2)
Quarter: 2013Q3

REPORT INFORMATION
  Report Type: Spontaneous
  Country: US (occurrence: US)
  Receive Date: 20130621
  Receipt Date: 20130711
  Transmission Date: 20140515
  Serious: No
  Sender: FDA-Public Use
  Company Number: US-B.I. PHARMACEUTICALS,INC./RIDGEFIELD-2013-BI-16866BP

PATIENT
  Age: 77 Year
  Sex: Female

DRUGS (9)
  1. COMBIVENT [Suspect]
     Indication: CHRONIC OBSTRUCTIVE PULMONARY DISEASE
     Dosage: STRENGTH: 20 MCG / 100 MCG; DAILY DOSE: 120MCG\600MCG
     Route: 055
     Dates: start: 201305, end: 201306
  2. COMBIVENT [Suspect]
     Indication: PRODUCT USED FOR UNKNOWN INDICATION
     Dosage: STRENGTH: 18 MCG / 103 MCG;
     Route: 055
  3. OXYGEN [Concomitant]
     Dosage: STRENGTH: 4 LITERS;
     Route: 055
  4. HYDROCODONE [Concomitant]
     Indication: BACK PAIN
     Route: 048
  5. HYDROCHLOROTHIAZIDE [Concomitant]
     Indication: HYPERTENSION
     Route: 048
  6. OMEPRAZOLE [Concomitant]
     Indication: ABDOMINAL DISCOMFORT
     Route: 048
  7. RAMIPRIL [Concomitant]
     Indication: HYPERTENSION
     Route: 048
  8. NITROGLYCERIN PATCH [Concomitant]
     Indication: HYPERTENSION
     Dosage: FORMULATION : PATCH
     Route: 061
  9. NITROGLYCERIN TABLETS [Concomitant]
     Indication: CHEST PAIN
     Route: 048

REACTIONS (6)
  - Dyspnoea [Unknown]
  - No therapeutic response [Unknown]
  - Dyspnoea [Unknown]
  - Drug ineffective [Not Recovered/Not Resolved]
  - Prescribed overdose [Unknown]
  - Drug ineffective [Unknown]
